FAERS Safety Report 13181848 (Version 1)
Quarter: 2017Q1

REPORT INFORMATION
  Report Type: Spontaneous
  Country: US (occurrence: US)
  Receive Date: 20170202
  Receipt Date: 20170202
  Transmission Date: 20170428
  Serious: No
  Sender: FDA-Public Use
  Company Number: US-IMPAX LABORATORIES, INC-2016-IPXL-01510

PATIENT
  Age: 79 Year
  Sex: Male
  Weight: 73 kg

DRUGS (3)
  1. RYTARY [Suspect]
     Active Substance: CARBIDOPA\LEVODOPA
     Dosage: 435 MG (1 PILL OF 245 MG AND 2 PILLS OF 95 MG), THREE DOSES, 3RD AND 4TH DOSE OF 340 MG
     Route: 048
     Dates: start: 20161025
  2. RYTARY [Suspect]
     Active Substance: CARBIDOPA\LEVODOPA
     Dosage: 387.5 MG (1 PILL OF 245 MG, 1PILL OF 95 MG AND HALF A PILL OF 95 MG), FIVE TIMES A DAY
     Route: 048
     Dates: start: 20161026
  3. RYTARY [Suspect]
     Active Substance: CARBIDOPA\LEVODOPA
     Indication: PARKINSON^S DISEASE
     Dosage: 340 MG (1 PILL OF 245 MG AND 1 PILL OF 95 MG 5 TIMES A DAY)
     Route: 048
     Dates: start: 20161019

REACTIONS (3)
  - Drug effect incomplete [Unknown]
  - Dyskinesia [Recovered/Resolved]
  - Hallucination [Recovered/Resolved]

NARRATIVE: CASE EVENT DATE: 2016
